FAERS Safety Report 7017778-3 (Version None)
Quarter: 2010Q3

REPORT INFORMATION
  Report Type: 
  Country: None (occurrence: None)
  Receive Date: 20100928
  Receipt Date: 20100922
  Transmission Date: 20110219
  Serious: Yes (Life-Threatening, Hospitalization, Other)
  Sender: FDA-Public Use
  Company Number: FR-ELI_LILLY_AND_COMPANY-FR201009005737

PATIENT
  Sex: Male

DRUGS (14)
  1. HUMALOG [Suspect]
     Route: 058
     Dates: start: 20100527, end: 20100603
  2. PIPERACILLIN AND TAZOBACTAM [Concomitant]
     Route: 042
     Dates: start: 20100527, end: 20100607
  3. MOPRAL [Concomitant]
     Indication: HYPERTENSION
     Dosage: 40 MG, DAILY (1/D)
     Route: 042
     Dates: start: 20100527, end: 20100529
  4. VOLUVEN [Concomitant]
     Dosage: 500 ML, DAILY (1/D)
     Route: 042
     Dates: end: 20100601
  5. VANCOMYCIN HCL [Concomitant]
     Dosage: 2.5 G, DAILY (1/D)
     Route: 042
     Dates: start: 20100531, end: 20100607
  6. SERESTA [Concomitant]
     Dosage: 20 MG, UNK
     Route: 048
     Dates: start: 20100528, end: 20100529
  7. PROPOFOL [Concomitant]
     Route: 042
     Dates: start: 20100530, end: 20100531
  8. SUFENTA PRESERVATIVE FREE [Concomitant]
     Dosage: 5 D/F, UNK
     Route: 042
     Dates: start: 20100530, end: 20100531
  9. BRICANYL [Concomitant]
     Indication: CHRONIC OBSTRUCTIVE PULMONARY DISEASE
     Dosage: UNK, UNK
     Route: 055
  10. ATROVENT [Concomitant]
     Indication: ACUTE MYOCARDIAL INFARCTION
     Route: 055
     Dates: start: 20100401
  11. CORDARONE [Concomitant]
     Dosage: UNK, UNK
     Route: 048
  12. AVANDAMET [Concomitant]
     Dosage: UNK, UNK
  13. ALDACTONE [Concomitant]
     Dosage: 25 MG, DAILY (1/D)
     Route: 048
  14. KARDEGIC [Concomitant]
     Dosage: 160 MG, DAILY (1/D)
     Route: 048
     Dates: start: 20100529, end: 20100529

REACTIONS (7)
  - CHRONIC OBSTRUCTIVE PULMONARY DISEASE [None]
  - DEPRESSED LEVEL OF CONSCIOUSNESS [None]
  - HEPARIN-INDUCED THROMBOCYTOPENIA [None]
  - HYPERTENSION [None]
  - LACTIC ACIDOSIS [None]
  - RESPIRATORY FAILURE [None]
  - STAPHYLOCOCCAL BACTERAEMIA [None]
